FAERS Safety Report 11898535 (Version 1)
Quarter: 2016Q1

REPORT INFORMATION
  Report Type: Spontaneous
  Country: US (occurrence: None)
  Receive Date: 20160107
  Receipt Date: 20160107
  Transmission Date: 20160526
  Serious: No
  Sender: FDA-Public Use
  Company Number: None

PATIENT
  Sex: Male

DRUGS (1)
  1. DETROL [Suspect]
     Active Substance: TOLTERODINE TARTRATE

REACTIONS (1)
  - Dry mouth [None]
